FAERS Safety Report 4776083-6 (Version None)
Quarter: 2005Q3

REPORT INFORMATION
  Report Type: 
  Country: None (occurrence: None)
  Receive Date: 20050922
  Receipt Date: 20050829
  Transmission Date: 20060218
  Serious: Yes (Death)
  Sender: FDA-Public Use
  Company Number: 2005CG01437

PATIENT
  Age: 29 Year
  Sex: Female

DRUGS (23)
  1. NAROPIN [Suspect]
     Indication: EPIDURAL ANAESTHESIA
     Route: 008
     Dates: start: 20050808
  2. NALADOR [Suspect]
     Route: 042
     Dates: start: 20050809, end: 20050809
  3. NALADOR [Suspect]
     Route: 042
     Dates: start: 20050809, end: 20050809
  4. NALADOR [Suspect]
     Route: 042
     Dates: start: 20050809, end: 20050809
  5. NALADOR [Suspect]
     Route: 042
     Dates: start: 20050809, end: 20050809
  6. SYNTOCINON [Suspect]
     Route: 042
     Dates: start: 20050808, end: 20050808
  7. SYNTOCINON [Suspect]
     Route: 042
     Dates: start: 20050808, end: 20050809
  8. SYNTOCINON [Suspect]
     Route: 042
     Dates: start: 20050809, end: 20050809
  9. SYNTOCINON [Suspect]
     Route: 042
     Dates: start: 20050809, end: 20050809
  10. SYNTOCINON [Suspect]
     Route: 042
     Dates: start: 20050809, end: 20050809
  11. ADRENALINE [Suspect]
     Route: 042
     Dates: start: 20050809, end: 20050809
  12. ADRENALINE [Suspect]
     Route: 042
     Dates: start: 20050809, end: 20050809
  13. ADRENALINE [Suspect]
     Route: 042
     Dates: start: 20050809, end: 20050809
  14. ADRENALINE [Suspect]
     Route: 042
     Dates: start: 20050809
  15. EPHEDRINE [Suspect]
     Route: 042
     Dates: start: 20050809, end: 20050809
  16. EPHEDRINE [Suspect]
     Route: 042
     Dates: start: 20050809, end: 20050809
  17. XYLOCAINE [Concomitant]
     Indication: EPIDURAL ANAESTHESIA
     Route: 008
     Dates: start: 20050808, end: 20050808
  18. DIPRIVAN [Concomitant]
     Indication: GENERAL ANAESTHESIA
     Route: 042
     Dates: start: 20050809
  19. NIMBEX [Concomitant]
     Indication: GENERAL ANAESTHESIA
     Dates: start: 20050809
  20. DESFLURANE [Concomitant]
     Indication: GENERAL ANAESTHESIA
     Dates: start: 20050809
  21. CELOCURINE [Concomitant]
     Indication: GENERAL ANAESTHESIA
     Dates: start: 20050809
  22. SUFENTANIL CITRATE [Concomitant]
     Indication: GENERAL ANAESTHESIA
     Dates: start: 20050809
  23. PROSTINE [Concomitant]
     Route: 067
     Dates: start: 20050808

REACTIONS (8)
  - CARDIAC ARREST [None]
  - DRUG INEFFECTIVE [None]
  - HAEMODYNAMIC INSTABILITY [None]
  - HAEMOGLOBIN DECREASED [None]
  - HYPOTENSION [None]
  - MYDRIASIS [None]
  - PULMONARY OEDEMA [None]
  - PULSE PRESSURE DECREASED [None]
